FAERS Safety Report 5804080-8 (Version None)
Quarter: 2008Q3

REPORT INFORMATION
  Report Type: 
  Country: None (occurrence: None)
  Receive Date: 20080707
  Receipt Date: 20080707
  Transmission Date: 20090109
  Serious: Yes (Disabling)
  Sender: FDA-Public Use
  Company Number: None

PATIENT
  Age: 65 Year
  Sex: Female

DRUGS (2)
  1. ZOMETA [Suspect]
     Indication: BREAST CANCER METASTATIC
     Dosage: 4MG EVERY 3 WKS  IV
     Route: 042
     Dates: start: 20050701, end: 20070201
  2. PENICILLIN VK [Concomitant]

REACTIONS (4)
  - BONE DISORDER [None]
  - JAW DISORDER [None]
  - JAW FRACTURE [None]
  - OSTEOLYSIS [None]
